FAERS Safety Report 8225456-8 (Version None)
Quarter: 2012Q1

REPORT INFORMATION
  Report Type: 
  Country: None (occurrence: None)
  Receive Date: 20120321
  Receipt Date: 20120307
  Transmission Date: 20120608
  Serious: Yes (Hospitalization, Other)
  Sender: FDA-Public Use
  Company Number: FR-AMGEN-FRASP2012015735

PATIENT
  Age: 70 Year
  Sex: Female

DRUGS (2)
  1. METHOTREXATE [Suspect]
     Indication: PSORIASIS
     Dosage: UNK
     Route: 042
     Dates: start: 20050101
  2. ENBREL [Suspect]
     Indication: PSORIASIS
     Dosage: 1 DF, WEEKLY
     Route: 058
     Dates: start: 20080501

REACTIONS (3)
  - METABOLIC SYNDROME [None]
  - HEPATITIS [None]
  - HEPATIC STEATOSIS [None]
